FAERS Safety Report 18991674 (Version 1)
Quarter: 2021Q1

REPORT INFORMATION
  Report Type: Spontaneous
  Country: ZM (occurrence: ZM)
  Receive Date: 20210310
  Receipt Date: 20210310
  Transmission Date: 20210420
  Serious: Yes (Other)
  Sender: FDA-Public Use
  Company Number: ZM-CASPER PHARMA LLC-2021CAS000111

PATIENT
  Age: 5 Year
  Sex: Female

DRUGS (6)
  1. BISMUTH, METRONIDAZOLE, TETRACYCLIN [Suspect]
     Active Substance: BISMUTH SUBSALICYLATE\METRONIDAZOLE\TETRACYCLINE HYDROCHLORIDE
     Indication: EMBOLIA CUTIS MEDICAMENTOSA
     Dosage: 200 MILLIGRAM
     Route: 042
  2. TRAMADOL. [Suspect]
     Active Substance: TRAMADOL
     Indication: COMPARTMENT SYNDROME
     Dosage: 25 MILLIGRAM, BID
     Route: 030
  3. TRAMADOL. [Suspect]
     Active Substance: TRAMADOL
     Indication: EMBOLIA CUTIS MEDICAMENTOSA
  4. IMIPENEM [Suspect]
     Active Substance: IMIPENEM
     Indication: COMPARTMENT SYNDROME
     Dosage: 250 MILLIGRAM, TID
     Route: 042
  5. BISMUTH, METRONIDAZOLE, TETRACYCLIN [Suspect]
     Active Substance: BISMUTH SUBSALICYLATE\METRONIDAZOLE\TETRACYCLINE HYDROCHLORIDE
     Indication: COMPARTMENT SYNDROME
  6. IMIPENEM [Suspect]
     Active Substance: IMIPENEM
     Indication: EMBOLIA CUTIS MEDICAMENTOSA

REACTIONS (2)
  - Product use in unapproved indication [Unknown]
  - Acute kidney injury [Recovered/Resolved]
